FAERS Safety Report 25359036 (Version 3)
Quarter: 2025Q2

REPORT INFORMATION
  Report Type: Report from Study
  Country: US (occurrence: US)
  Receive Date: 20250526
  Receipt Date: 20250618
  Transmission Date: 20250717
  Serious: Yes (Other)
  Sender: MALLINCKRODT
  Company Number: US-MALLINCKRODT-MNK202500501

PATIENT
  Age: 92 Year
  Sex: Female

DRUGS (3)
  1. CORTICOTROPIN [Suspect]
     Active Substance: CORTICOTROPIN
     Indication: Iridocyclitis
     Route: 058
     Dates: start: 2023
  2. CORTICOTROPIN [Suspect]
     Active Substance: CORTICOTROPIN
     Indication: Iridocyclitis
  3. CORTICOTROPIN [Suspect]
     Active Substance: CORTICOTROPIN
     Dates: start: 2025

REACTIONS (11)
  - Closed globe injury [Unknown]
  - Cataract [Not Recovered/Not Resolved]
  - Disease recurrence [Not Recovered/Not Resolved]
  - Blindness [Unknown]
  - Eye haemorrhage [Unknown]
  - Eye infection [Unknown]
  - Condition aggravated [Unknown]
  - Skin atrophy [Unknown]
  - Malaise [Unknown]
  - Therapy non-responder [Unknown]
  - Inappropriate schedule of product administration [Unknown]

NARRATIVE: CASE EVENT DATE: 20250419
